FAERS Safety Report 5099913-X (Version None)
Quarter: 2006Q3

REPORT INFORMATION
  Report Type: 
  Country: None (occurrence: None)
  Receive Date: 20060908
  Receipt Date: 20060819
  Transmission Date: 20061208
  Serious: Yes (Hospitalization)
  Sender: FDA-Public Use
  Company Number: US-AMGEN-US190695

PATIENT
  Sex: Male

DRUGS (2)
  1. ENBREL [Suspect]
     Indication: RHEUMATOID ARTHRITIS
     Dates: start: 19990101
  2. ARAVA [Concomitant]
     Dates: start: 19990101

REACTIONS (5)
  - ANKLE OPERATION [None]
  - KNEE ARTHROPLASTY [None]
  - OCULAR NEOPLASM [None]
  - OSTEOPOROSIS [None]
  - SHOULDER ARTHROPLASTY [None]
